FAERS Safety Report 5312064-1 (Version None)
Quarter: 2007Q2

REPORT INFORMATION
  Report Type: 
  Country: None (occurrence: None)
  Receive Date: 20070430
  Receipt Date: 20060606
  Transmission Date: 20071010
  Serious: No
  Sender: FDA-Public Use
  Company Number: 2006UW11587

PATIENT
  Age: 66 Year
  Sex: Female
  Weight: 86.2 kg

DRUGS (21)
  1. NEXIUM [Suspect]
     Indication: GASTROOESOPHAGEAL REFLUX DISEASE
     Route: 048
     Dates: start: 20060401
  2. RELAFEN [Concomitant]
  3. DARVOCET [Concomitant]
  4. METFORMIN HCL [Concomitant]
  5. POTASSIUM ACETATE [Concomitant]
  6. TRAMADOL HCL [Concomitant]
  7. COZAAR [Concomitant]
  8. OXYBUTYNIN CHLORIDE [Concomitant]
  9. LASIX [Concomitant]
  10. PLAVIX [Concomitant]
  11. CLONIDINE [Concomitant]
  12. SINGULAIR [Concomitant]
  13. ATENOLOL [Concomitant]
  14. LEVOTHYROXINE SODIUM [Concomitant]
  15. TRICOR [Concomitant]
  16. CALCIUM CITRATE [Concomitant]
  17. ROBAXIN [Concomitant]
  18. GLYBURIDE [Concomitant]
  19. ALBUTEROL [Concomitant]
  20. MDI [Concomitant]
  21. ADVAIR DISKUS 100/50 [Concomitant]

REACTIONS (1)
  - OESOPHAGEAL ULCER [None]
